FAERS Safety Report 7313581-5 (Version None)
Quarter: 2011Q1

REPORT INFORMATION
  Report Type: 
  Country: None (occurrence: None)
  Receive Date: 20110215
  Receipt Date: 20110215
  Transmission Date: 20110831
  Serious: Yes (Other)
  Sender: FDA-Public Use
  Company Number: None

PATIENT
  Age: 35 Year
  Sex: Male
  Weight: 68.0396 kg

DRUGS (1)
  1. GEODON [Suspect]
     Indication: BIPOLAR I DISORDER
     Dosage: 20MG BID PO
     Route: 048
     Dates: start: 20110213, end: 20110214

REACTIONS (4)
  - TONGUE DISORDER [None]
  - ANXIETY [None]
  - SWOLLEN TONGUE [None]
  - PHARYNGEAL MASS [None]
